FAERS Safety Report 8344628-5 (Version None)
Quarter: 2012Q2

REPORT INFORMATION
  Report Type: 
  Country: None (occurrence: None)
  Receive Date: 20120508
  Receipt Date: 20120502
  Transmission Date: 20120825
  Serious: Yes (Hospitalization)
  Sender: FDA-Public Use
  Company Number: US-BAYER-2012-043859

PATIENT
  Age: 23 Year
  Sex: Female
  Weight: 74.83 kg

DRUGS (3)
  1. SPIRONOLACTONE [Concomitant]
     Dosage: 100 MG, UNK
  2. YAZ [Suspect]
     Dosage: UNK
  3. IBUPROFEN (ADVIL) [Concomitant]
     Indication: PAIN
     Dosage: UNK

REACTIONS (1)
  - PULMONARY EMBOLISM [None]
